FAERS Safety Report 4543172-0 (Version None)
Quarter: 2005Q1

REPORT INFORMATION
  Report Type: 
  Country: None (occurrence: None)
  Receive Date: 20050103
  Receipt Date: 20041220
  Transmission Date: 20050727
  Serious: Yes (Hospitalization)
  Sender: FDA-Public Use
  Company Number: FR-JNJFOC-20041005362

PATIENT
  Age: 50 Year
  Sex: Female
  Weight: 60 kg

DRUGS (1)
  1. EPITOMAX [Suspect]
     Route: 049

REACTIONS (3)
  - CHOROIDAL DETACHMENT [None]
  - CILIARY BODY DISORDER [None]
  - GLAUCOMA [None]
